FAERS Safety Report 6960536-6 (Version None)
Quarter: 2010Q3

REPORT INFORMATION
  Report Type: 
  Country: None (occurrence: None)
  Receive Date: 20100901
  Receipt Date: 20100820
  Transmission Date: 20110219
  Serious: Yes (Other)
  Sender: FDA-Public Use
  Company Number: US-JNJFOC-20100808000

PATIENT
  Sex: Female
  Weight: 62.6 kg

DRUGS (6)
  1. DURAGESIC-100 [Suspect]
     Indication: CANCER PAIN
     Dosage: 100UG/HR PLUS 100UG/HR
     Route: 062
  2. DURAGESIC-100 [Suspect]
     Dosage: 100UG/HR PLUS 100UG/HR
     Route: 062
  3. DURAGESIC-100 [Suspect]
     Dosage: 100UG/HR PLUS 100UG/HR
     Route: 062
  4. FENTANYL CITRATE [Suspect]
     Indication: CANCER PAIN
     Dosage: 100UG/HR PLUS 100UG/HR
     Route: 062
  5. LORTAB [Concomitant]
     Indication: PAIN
     Route: 048
  6. DILAUDID [Concomitant]
     Indication: PAIN
     Route: 048

REACTIONS (7)
  - ANXIETY [None]
  - APPLICATION SITE ERYTHEMA [None]
  - MUSCLE SPASMS [None]
  - NEUROPATHY PERIPHERAL [None]
  - PANCREATIC CARCINOMA [None]
  - PRODUCT ADHESION ISSUE [None]
  - WRONG TECHNIQUE IN DRUG USAGE PROCESS [None]
